FAERS Safety Report 23204221 (Version 1)
Quarter: 2023Q4

REPORT INFORMATION
  Report Type: Spontaneous
  Country: US (occurrence: None)
  Receive Date: 20231120
  Receipt Date: 20231120
  Transmission Date: 20240110
  Serious: Yes (Death)
  Sender: FDA-Public Use
  Company Number: None

PATIENT
  Age: 83 Year
  Sex: Male
  Weight: 73 kg

DRUGS (1)
  1. TENECTEPLASE [Suspect]
     Active Substance: TENECTEPLASE
     Dosage: OTHER FREQUENCY : ONCE;?
     Route: 040
     Dates: start: 20231114

REACTIONS (1)
  - Haemorrhagic transformation stroke [None]

NARRATIVE: CASE EVENT DATE: 20231114
